FAERS Safety Report 25368685 (Version 5)
Quarter: 2025Q4

REPORT INFORMATION
  Report Type: Report from Study
  Country: EU (occurrence: EU)
  Receive Date: 20250528
  Receipt Date: 20251015
  Transmission Date: 20260118
  Serious: Yes (Hospitalization, Other)
  Sender: EMD SERONO INC
  Company Number: EU-Merck Healthcare KGaA-2025026254

PATIENT
  Age: 45 Year
  Sex: Male

DRUGS (3)
  1. REBIF [Suspect]
     Active Substance: INTERFERON BETA-1A
     Indication: Relapsing-remitting multiple sclerosis
     Dates: start: 2008
  2. REBIF [Suspect]
     Active Substance: INTERFERON BETA-1A
  3. HYDROXOCOBALAMINE HYDROCHLORIDE [Concomitant]
     Indication: Product used for unknown indication
     Dosage: INJVLST 500MCG/ML

REACTIONS (4)
  - Cerebral haemorrhage [Recovering/Resolving]
  - Meningitis [Unknown]
  - Aneurysm [Unknown]
  - Product dose omission issue [Not Recovered/Not Resolved]

NARRATIVE: CASE EVENT DATE: 20250515
